FAERS Safety Report 13644066 (Version 1)
Quarter: 2017Q2

REPORT INFORMATION
  Report Type: Spontaneous
  Country: FR (occurrence: FR)
  Receive Date: 20170612
  Receipt Date: 20170612
  Transmission Date: 20170830
  Serious: Yes (Other)
  Sender: FDA-Public Use
  Company Number: FR-BAYER-2017-110772

PATIENT
  Age: 45 Year
  Sex: Female

DRUGS (1)
  1. MIRENA [Suspect]
     Active Substance: LEVONORGESTREL
     Indication: CONTRACEPTION
     Dosage: 20 MCG/24HR, CONT
     Route: 015
     Dates: start: 20080401

REACTIONS (13)
  - Anxiety [Unknown]
  - Hypertension [Unknown]
  - Tachycardia [Unknown]
  - Tendonitis [Unknown]
  - Alopecia [Unknown]
  - Loss of libido [Unknown]
  - Keratitis [Unknown]
  - Migraine [Unknown]
  - Visual acuity reduced [Unknown]
  - Amnesia [Unknown]
  - Speech disorder [Unknown]
  - Formication [Unknown]
  - Back pain [Unknown]

NARRATIVE: CASE EVENT DATE: 2008
